FAERS Safety Report 23336429 (Version 3)
Quarter: 2024Q2

REPORT INFORMATION
  Report Type: Report from Study
  Country: US (occurrence: US)
  Receive Date: 20231225
  Receipt Date: 20240613
  Transmission Date: 20240716
  Serious: Yes (Other)
  Sender: FDA-Public Use
  Company Number: US-ABBVIE-5553478

PATIENT
  Sex: Male

DRUGS (6)
  1. SKYRIZI [Suspect]
     Active Substance: RISANKIZUMAB-RZAA
     Indication: Crohn^s disease
     Dosage: FORM STRENGTH: 360MG?FORM STRENGTH: 2.4 MILLILITRE(S)?LAST ADMIN DATE: 2023
     Route: 058
     Dates: start: 20230917
  2. SKYRIZI [Suspect]
     Active Substance: RISANKIZUMAB-RZAA
     Dosage: FORM STRENGTH: 360MG?FREQUENCY TEXT: WEEK 12?FORM STRENGTH: 2.4 MILLILITRE(S)
     Route: 058
     Dates: start: 20230713, end: 20230713
  3. SKYRIZI [Suspect]
     Active Substance: RISANKIZUMAB-RZAA
     Dosage: FORM STRENGTH: 360MG?FIRST ADMIN DATE WAS 2023
     Route: 058
  4. SKYRIZI [Suspect]
     Active Substance: RISANKIZUMAB-RZAA
     Indication: Crohn^s disease
     Dosage: FORM STRENGTH: 600MG?FREQUENCY TEXT: WEEK 0
     Route: 042
     Dates: start: 202304, end: 202304
  5. SKYRIZI [Suspect]
     Active Substance: RISANKIZUMAB-RZAA
     Indication: Crohn^s disease
     Dosage: FORM STRENGTH: 600MG?FREQUENCY TEXT: WEEK 4
     Route: 042
     Dates: start: 202305, end: 202305
  6. SKYRIZI [Suspect]
     Active Substance: RISANKIZUMAB-RZAA
     Indication: Crohn^s disease
     Dosage: FORM STRENGTH: 600MG?FREQUENCY TEXT: WEEK 8
     Route: 042
     Dates: start: 20230607, end: 20230607

REACTIONS (14)
  - Ileostomy [Unknown]
  - Gastrointestinal sounds abnormal [Unknown]
  - Abnormal faeces [Not Recovered/Not Resolved]
  - Device issue [Unknown]
  - Gastrointestinal stoma output increased [Unknown]
  - Crohn^s disease [Recovering/Resolving]
  - Inflammatory marker decreased [Unknown]
  - Hypersomnia [Recovering/Resolving]
  - Therapeutic response shortened [Recovering/Resolving]
  - Gastrointestinal stoma complication [Recovering/Resolving]
  - Abnormal faeces [Unknown]
  - Flatulence [Unknown]
  - Fatigue [Unknown]
  - Ostomy bag placement [Unknown]

NARRATIVE: CASE EVENT DATE: 20230101
